FAERS Safety Report 6098163-8 (Version None)
Quarter: 2009Q1

REPORT INFORMATION
  Report Type: 
  Country: None (occurrence: None)
  Receive Date: 20090227
  Receipt Date: 20090224
  Transmission Date: 20090719
  Serious: Yes (Life-Threatening, Other)
  Sender: FDA-Public Use
  Company Number: US-ABBOTT-08P-163-0486167-00

PATIENT
  Sex: Female
  Weight: 37.682 kg

DRUGS (24)
  1. HUMIRA [Suspect]
     Indication: CROHN'S DISEASE
     Dates: start: 20080601, end: 20080601
  2. HUMIRA [Suspect]
     Route: 058
     Dates: start: 20080601
  3. TRAMADOL HCL [Suspect]
     Indication: PAIN
     Route: 048
     Dates: start: 20080501, end: 20081101
  4. TRAMADOL HCL [Suspect]
     Indication: CROHN'S DISEASE
  5. RHINOFLEX [Concomitant]
     Indication: ABDOMINAL PAIN
     Dosage: 50/500MG
     Route: 048
  6. RHINOFLEX [Concomitant]
     Indication: CROHN'S DISEASE
  7. PHENERGAN [Concomitant]
     Indication: NAUSEA
     Dosage: QHS
     Route: 048
  8. PHENERGAN [Concomitant]
     Indication: VOMITING
  9. ZOFRAN [Concomitant]
     Indication: NAUSEA
     Route: 048
  10. ZOFRAN [Concomitant]
     Indication: VOMITING
  11. LYCOSAMINE [Concomitant]
     Indication: DRUG USE FOR UNKNOWN INDICATION
  12. COMPAZINE [Concomitant]
     Indication: NAUSEA
     Dosage: STRENGTH: 10MG
     Route: 048
  13. COMPAZINE [Concomitant]
     Indication: VOMITING
  14. FOLIC ACID [Concomitant]
     Indication: DRUG USE FOR UNKNOWN INDICATION
  15. AMYTRIPTYLINE [Concomitant]
     Indication: DRUG USE FOR UNKNOWN INDICATION
  16. KEPPRA [Concomitant]
     Indication: CONVULSION
  17. ELAVIL [Concomitant]
     Indication: SLEEP DISORDER
  18. FIORINAL [Concomitant]
     Indication: MIGRAINE
     Dosage: 50-325MG
     Route: 048
  19. HYOMAX [Concomitant]
     Indication: ANTIINFLAMMATORY THERAPY
  20. SYNTHROID [Concomitant]
     Indication: HYPOTHYROIDISM
  21. SUCRALFATE [Concomitant]
     Indication: GASTROOESOPHAGEAL REFLUX DISEASE
  22. CYPRUS PH [Concomitant]
     Indication: INFECTION PROPHYLAXIS
  23. FENTANYL [Concomitant]
     Indication: CROHN'S DISEASE
     Dosage: PATCH
     Route: 062
  24. FENTANYL [Concomitant]
     Indication: PAIN

REACTIONS (12)
  - APPARENT DEATH [None]
  - CONVULSION [None]
  - CYANOSIS [None]
  - DEHYDRATION [None]
  - FALL [None]
  - LIP DISCOLOURATION [None]
  - NAUSEA [None]
  - OEDEMA PERIPHERAL [None]
  - RESPIRATORY ARREST [None]
  - SKIN DISCOLOURATION [None]
  - TENDON INJURY [None]
  - VITAMIN B12 DEFICIENCY [None]
